FAERS Safety Report 4818435-1 (Version None)
Quarter: 2005Q4

REPORT INFORMATION
  Report Type: 
  Country: None (occurrence: None)
  Receive Date: 20051031
  Receipt Date: 20051019
  Transmission Date: 20060501
  Serious: Yes (Other)
  Sender: FDA-Public Use
  Company Number: 2005144703

PATIENT
  Age: 63 Year
  Sex: Female
  Weight: 124.7392 kg

DRUGS (7)
  1. ZOLOFT [Suspect]
     Indication: ANXIETY
     Dosage: 25 MG (25 MG, 1 IN 1 D), ORAL
     Route: 048
     Dates: end: 20050201
  2. ZOLOFT [Suspect]
     Indication: DEPRESSION
     Dosage: 25 MG (25 MG, 1 IN 1 D), ORAL
     Route: 048
     Dates: end: 20050201
  3. ZOLOFT [Suspect]
     Indication: DISTURBANCE IN ATTENTION
     Dosage: 25 MG (25 MG, 1 IN 1 D), ORAL
     Route: 048
     Dates: end: 20050201
  4. ZOLOFT [Suspect]
     Indication: OBSESSIVE THOUGHTS
     Dosage: 25 MG (25 MG, 1 IN 1 D), ORAL
     Route: 048
     Dates: end: 20050201
  5. CELEBREX [Concomitant]
  6. ESTROGENS SOL/INJ [Concomitant]
  7. SYNTHROID [Concomitant]

REACTIONS (8)
  - ANXIETY [None]
  - CRYING [None]
  - DEPRESSION [None]
  - DISTURBANCE IN ATTENTION [None]
  - HEPATITIS C [None]
  - HEPATOCELLULAR DAMAGE [None]
  - HYPERTENSION [None]
  - OBSESSIVE-COMPULSIVE DISORDER [None]
